FAERS Safety Report 5405246-1 (Version None)
Quarter: 2007Q3

REPORT INFORMATION
  Report Type: 
  Country: None (occurrence: None)
  Receive Date: 20070803
  Receipt Date: 20060829
  Transmission Date: 20080115
  Serious: Yes (Death)
  Sender: FDA-Public Use
  Company Number: US-BRISTOL-MYERS SQUIBB COMPANY-13468160

PATIENT
  Age: 42 Year
  Sex: Male
  Weight: 84 kg

DRUGS (7)
  1. CCNU [Suspect]
     Indication: BRAIN NEOPLASM
     Route: 048
     Dates: start: 20060220
  2. DILANTIN KAPSEAL [Concomitant]
  3. OXYCONTIN [Concomitant]
  4. PEPCID [Concomitant]
  5. DECADRON [Concomitant]
  6. PROVIGIL [Concomitant]
  7. ZOFRAN [Concomitant]
     Indication: PREMEDICATION
     Route: 048
     Dates: start: 20060220, end: 20060220

REACTIONS (1)
  - MALIGNANT NEOPLASM PROGRESSION [None]
